FAERS Safety Report 7462404-2 (Version None)
Quarter: 2011Q2

REPORT INFORMATION
  Report Type: 
  Country: None (occurrence: None)
  Receive Date: 20110506
  Receipt Date: 20110502
  Transmission Date: 20111010
  Serious: Yes (Disabling, Other)
  Sender: FDA-Public Use
  Company Number: US-BRACCO-005113

PATIENT
  Sex: Female
  Weight: 149 kg

DRUGS (21)
  1. AMITRIPTYLINE [Concomitant]
  2. HUMALOG [Concomitant]
  3. MULTIHANCE [Suspect]
     Indication: NUCLEAR MAGNETIC RESONANCE IMAGING
     Route: 042
     Dates: start: 20080304, end: 20080304
  4. DIOVAN [Concomitant]
  5. PROHANCE [Suspect]
     Indication: ANGIOGRAM
     Dates: start: 20070511, end: 20070511
  6. PHOSLO [Concomitant]
  7. ASPIRIN [Concomitant]
  8. ALTACE [Concomitant]
  9. MAGNEVIST [Suspect]
     Indication: NUCLEAR MAGNETIC RESONANCE IMAGING ABDOMINAL
     Dates: start: 20030913, end: 20030913
  10. PROCRIT [Concomitant]
  11. RENAGEL [Concomitant]
  12. FOSRENOL [Concomitant]
  13. IRON [Concomitant]
  14. PROHANCE [Suspect]
     Indication: NUCLEAR MAGNETIC RESONANCE IMAGING
     Dates: start: 20071109, end: 20071109
  15. EPOGEN [Concomitant]
  16. LANTUS [Concomitant]
  17. NORVASC [Concomitant]
  18. SENSIPAR [Concomitant]
  19. COREG [Concomitant]
  20. CLONIDINE [Concomitant]
  21. ROCALTROL [Concomitant]

REACTIONS (8)
  - DEFORMITY [None]
  - EMOTIONAL DISTRESS [None]
  - PAIN [None]
  - SCAR [None]
  - EXCORIATION [None]
  - MENTAL DISORDER [None]
  - NEPHROGENIC SYSTEMIC FIBROSIS [None]
  - MOBILITY DECREASED [None]
